FAERS Safety Report 7412205-6 (Version None)
Quarter: 2011Q2

REPORT INFORMATION
  Report Type: 
  Country: None (occurrence: None)
  Receive Date: 20110413
  Receipt Date: 20110331
  Transmission Date: 20111010
  Serious: Yes (Hospitalization, Other)
  Sender: FDA-Public Use
  Company Number: DE-ELI_LILLY_AND_COMPANY-DE201104000072

PATIENT
  Sex: Male

DRUGS (4)
  1. LEVOTHYROXINE SODIUM [Concomitant]
  2. AMLODIPINE BESYLATE [Concomitant]
  3. YENTREVE [Suspect]
     Route: 048
  4. LISINOPRIL [Concomitant]

REACTIONS (2)
  - TRANSAMINASES INCREASED [None]
  - LIVER INJURY [None]
